FAERS Safety Report 20221434 (Version 2)
Quarter: 2021Q4

REPORT INFORMATION
  Report Type: Spontaneous
  Country: DE (occurrence: DE)
  Receive Date: 20211223
  Receipt Date: 20211225
  Transmission Date: 20220303
  Serious: Yes (Other)
  Sender: FDA-Public Use
  Company Number: DE-SANOFI-00902708

PATIENT
  Age: 40 Year
  Sex: Male

DRUGS (1)
  1. DUPIXENT [Suspect]
     Active Substance: DUPILUMAB
     Indication: Atopy
     Dosage: UNK

REACTIONS (3)
  - Malignant neoplasm of eye [Unknown]
  - Eosinophilia [Unknown]
  - Off label use [Unknown]
